FAERS Safety Report 8059093-5 (Version None)
Quarter: 2012Q1

REPORT INFORMATION
  Report Type: 
  Country: None (occurrence: None)
  Receive Date: 20120120
  Receipt Date: 20120110
  Transmission Date: 20120608
  Serious: Yes (Hospitalization)
  Sender: FDA-Public Use
  Company Number: US-JNJFOC-20110300421

PATIENT
  Age: 45 Year
  Sex: Female
  Weight: 79.7 kg

DRUGS (8)
  1. SYNTHROID [Concomitant]
  2. PROTONIX [Concomitant]
  3. IBUPROFEN [Concomitant]
  4. FISH OIL [Concomitant]
  5. VISTARIL [Concomitant]
  6. TYLENOL PM [Suspect]
     Indication: PRODUCT USED FOR UNKNOWN INDICATION
     Route: 048
     Dates: start: 20110214, end: 20110215
  7. METFORMIN HCL [Concomitant]
  8. TRAZODONE HCL [Concomitant]

REACTIONS (5)
  - ABDOMINAL PAIN [None]
  - INTENTIONAL OVERDOSE [None]
  - INTENTIONAL SELF-INJURY [None]
  - VOMITING [None]
  - HEPATIC ENZYME INCREASED [None]
